FAERS Safety Report 17867268 (Version 3)
Quarter: 2020Q3

REPORT INFORMATION
  Report Type: Report from Study
  Country: CA (occurrence: CA)
  Receive Date: 20200605
  Receipt Date: 20200716
  Transmission Date: 20201103
  Serious: Yes (Other)
  Sender: FDA-Public Use
  Company Number: PHHY2017CA124793

PATIENT
  Sex: Female

DRUGS (1)
  1. GILENYA [Suspect]
     Active Substance: FINGOLIMOD HYDROCHLORIDE
     Indication: PRODUCT USED FOR UNKNOWN INDICATION
     Dosage: UNK
     Route: 048
     Dates: start: 20151104, end: 20191014

REACTIONS (8)
  - Expanded disability status scale score increased [Not Recovered/Not Resolved]
  - Lymphopenia [Unknown]
  - Eye pain [Unknown]
  - Headache [Unknown]
  - Fatigue [Unknown]
  - Visual impairment [Unknown]
  - Tooth fracture [Unknown]
  - Tooth injury [Unknown]
